FAERS Safety Report 9525262 (Version 2)
Quarter: 2013Q3

REPORT INFORMATION
  Report Type: Spontaneous
  Country: US (occurrence: US)
  Receive Date: 20130916
  Receipt Date: 20130916
  Transmission Date: 20140515
  Serious: Yes (Other)
  Sender: FDA-Public Use
  Company Number: US-BANPHARM-20131673

PATIENT
  Age: 50 Year
  Sex: Male

DRUGS (1)
  1. AMANTADINE UNKNOWN PRODUCT [Suspect]
     Indication: PARKINSON^S DISEASE
     Dosage: 100 MG, BID,

REACTIONS (2)
  - Autophony [Recovering/Resolving]
  - Eustachian tube patulous [Recovering/Resolving]
